FAERS Safety Report 4610884-X (Version None)
Quarter: 2005Q2

REPORT INFORMATION
  Report Type: 
  Country: None (occurrence: None)
  Receive Date: 20050302
  Receipt Date: 20040614
  Transmission Date: 20051028
  Serious: Yes (Other)
  Sender: FDA-Public Use
  Company Number: 2004-117230-NL

PATIENT
  Age: 46 Year
  Sex: Male
  Weight: 102 kg

DRUGS (4)
  1. REMERON SOLTAB [Suspect]
     Indication: DEPRESSION
     Dosage: 30 MG DAILY ORAL
     Route: 048
     Dates: start: 20040405, end: 20040602
  2. REMERON SOLTAB [Suspect]
     Indication: PROPHYLAXIS
     Dosage: 30 MG DAILY ORAL
     Route: 048
     Dates: start: 20040405, end: 20040602
  3. INTERFERON [Concomitant]
  4. MULTI-VITAMINS [Concomitant]

REACTIONS (1)
  - CONVULSION [None]
